FAERS Safety Report 9677863 (Version 1)
Quarter: 2013Q4

REPORT INFORMATION
  Report Type: Spontaneous
  Country: IT (occurrence: IT)
  Receive Date: 20131108
  Receipt Date: 20131108
  Transmission Date: 20140711
  Serious: Yes (Other)
  Sender: FDA-Public Use
  Company Number: IT-SA-2013SA111849

PATIENT
  Age: 90 Year
  Sex: Female

DRUGS (14)
  1. LASIX [Suspect]
     Indication: PULMONARY OEDEMA
     Route: 048
     Dates: start: 20131029
  2. LASIX [Suspect]
     Indication: PULMONARY OEDEMA
     Route: 048
     Dates: end: 20131029
  3. LUVION [Suspect]
     Indication: PULMONARY OEDEMA
     Route: 048
     Dates: end: 20131029
  4. LUVION [Suspect]
     Indication: PULMONARY OEDEMA
     Route: 048
     Dates: start: 20131029
  5. OMEPRAZOLE [Concomitant]
     Dosage: IN THE MORNING
  6. LANOXIN [Concomitant]
     Dosage: IN THE MORNING
  7. GLYCERYL TRINITRATE [Concomitant]
     Dosage: IN THE MORNING
  8. DILATREND [Concomitant]
     Dosage: IN THE MORNING AND AT SUPPER
     Route: 048
  9. HUMALOG [Concomitant]
     Dosage: DOSE: 2/ 3 IU AS NEEDED IN THE MORNING, AT LUNCH AND AT SUPPER
  10. CIPROXIN [Concomitant]
     Dosage: IN THE MORNING AND AT SUPPER
  11. ALLOPURINOL [Concomitant]
     Dosage: IN THE AFTERNOON
  12. CARDIOASPIRIN [Concomitant]
     Dosage: AT LUNCH
  13. PLAVIX [Concomitant]
     Dosage: AT SUPPER
  14. PROVISACOR [Concomitant]

REACTIONS (1)
  - Transient ischaemic attack [Unknown]
